FAERS Safety Report 6983796-4 (Version None)
Quarter: 2010Q3

REPORT INFORMATION
  Report Type: 
  Country: None (occurrence: None)
  Receive Date: 20100914
  Receipt Date: 20090120
  Transmission Date: 20110219
  Serious: No
  Sender: FDA-Public Use
  Company Number: US-WYE-H07810109

PATIENT
  Sex: Female

DRUGS (1)
  1. ADVIL LIQUI-GELS [Suspect]
     Indication: ANALGESIC THERAPY
     Dosage: 1 TABLET X 1
     Route: 048

REACTIONS (4)
  - CIRCUMORAL OEDEMA [None]
  - EYE SWELLING [None]
  - HYPERSENSITIVITY [None]
  - SWELLING FACE [None]
